FAERS Safety Report 17052979 (Version 1)
Quarter: 2019Q4

REPORT INFORMATION
  Report Type: Spontaneous
  Country: VN (occurrence: VN)
  Receive Date: 20191120
  Receipt Date: 20191120
  Transmission Date: 20200122
  Serious: Yes (Life-Threatening, Hospitalization)
  Sender: FDA-Public Use
  Company Number: VN-ELI_LILLY_AND_COMPANY-VN201911007901

PATIENT
  Age: 58 Year
  Sex: Male
  Weight: 56 kg

DRUGS (11)
  1. HUMULIN N [Suspect]
     Active Substance: INSULIN HUMAN
     Indication: SKIN TEST
     Dosage: UNK, UNKNOWN
     Route: 058
  2. ACTRAPID [Suspect]
     Active Substance: INSULIN HUMAN
     Indication: SKIN TEST
     Dosage: UNK, UNKNOWN
     Route: 058
  3. HUMALOG [Suspect]
     Active Substance: INSULIN LISPRO
     Indication: SKIN TEST
     Dosage: UNK, UNKNOWN
     Route: 058
  4. LANTUS [Suspect]
     Active Substance: INSULIN GLARGINE
     Indication: SKIN TEST
     Dosage: UNK, UNKNOWN
     Route: 058
  5. HUMULIN R [Suspect]
     Active Substance: INSULIN HUMAN
     Indication: SKIN TEST
     Dosage: UNK, UNKNOWN
     Route: 058
  6. HUMALOG MIX75/25 [Suspect]
     Active Substance: INSULIN LISPRO
     Indication: SKIN TEST
     Dosage: UNK, UNKNOWN
     Route: 058
  7. INSULIN ASPART [Suspect]
     Active Substance: INSULIN ASPART
     Indication: TYPE 2 DIABETES MELLITUS
     Dosage: 20 INTERNATIONAL UNIT, DAILY
     Route: 058
     Dates: start: 20180321, end: 20180625
  8. MIXTARD [INSULIN HUMAN;INSULIN HUMAN INJECTIO [Suspect]
     Active Substance: INSULIN HUMAN
     Indication: SKIN TEST
     Dosage: UNK, UNKNOWN
     Route: 058
  9. INSULIN HUMAN [Suspect]
     Active Substance: INSULIN HUMAN
     Indication: TYPE 2 DIABETES MELLITUS
     Dosage: 37 INTERNATIONAL UNIT, DAILY
     Route: 058
     Dates: start: 20180625, end: 20180728
  10. NOVORAPID [Suspect]
     Active Substance: INSULIN ASPART
     Indication: SKIN TEST
     Dosage: UNK, UNKNOWN
     Route: 058
  11. INSULATARD HUMAN [Suspect]
     Active Substance: INSULIN HUMAN
     Indication: SKIN TEST
     Dosage: UNK, UNKNOWN
     Route: 058

REACTIONS (2)
  - Diabetic ketoacidosis [Recovered/Resolved]
  - Drug hypersensitivity [Recovering/Resolving]
